FAERS Safety Report 23052774 (Version 3)
Quarter: 2024Q2

REPORT INFORMATION
  Report Type: Spontaneous
  Country: US (occurrence: US)
  Receive Date: 20231011
  Receipt Date: 20240617
  Transmission Date: 20240716
  Serious: No
  Sender: FDA-Public Use
  Company Number: US-SA-SAC20231005000872

PATIENT
  Age: 29 Year
  Sex: Male

DRUGS (2)
  1. DUPIXENT [Suspect]
     Active Substance: DUPILUMAB
     Indication: Dermatitis
     Dosage: 600 MG, 1X
     Route: 058
     Dates: start: 20230824, end: 20230824
  2. DUPIXENT [Suspect]
     Active Substance: DUPILUMAB
     Indication: Dermatitis atopic
     Dosage: 300 MG, QOW
     Route: 058
     Dates: start: 20230907

REACTIONS (9)
  - Injection site pain [Unknown]
  - Product preparation error [Unknown]
  - Injection site rash [Not Recovered/Not Resolved]
  - Product use in unapproved indication [Unknown]
  - Injection site swelling [Recovered/Resolved]
  - Injection site bruising [Unknown]
  - Injection site pruritus [Recovered/Resolved]
  - Product administered at inappropriate site [Unknown]
  - Oral herpes [Unknown]

NARRATIVE: CASE EVENT DATE: 20230101
